FAERS Safety Report 5210948-6 (Version None)
Quarter: 2007Q1

REPORT INFORMATION
  Report Type: 
  Country: None (occurrence: None)
  Receive Date: 20070117
  Receipt Date: 20070110
  Transmission Date: 20070707
  Serious: Yes (Hospitalization, Other)
  Sender: FDA-Public Use
  Company Number: US-SHR-US-2006-014533

PATIENT
  Age: 55 Year
  Sex: Female

DRUGS (3)
  1. BETASERON [Suspect]
     Indication: MULTIPLE SCLEROSIS
     Dosage: 8 MIU, EVERY 2D
     Route: 058
     Dates: start: 20041111, end: 20051028
  2. BETASERON [Suspect]
     Dosage: 8 MIU, EVERY 2D
     Route: 058
     Dates: start: 20061015
  3. NICOTINE [Concomitant]
     Indication: NICOTINE DEPENDENCE

REACTIONS (15)
  - COLON CANCER [None]
  - DYSPHAGIA [None]
  - FALL [None]
  - GALLBLADDER DISORDER [None]
  - INTERVERTEBRAL DISC PROTRUSION [None]
  - MULTIPLE SCLEROSIS [None]
  - NICOTINE DEPENDENCE [None]
  - PAIN [None]
  - PELVIC FRACTURE [None]
  - POST PROCEDURAL INFECTION [None]
  - PUPILLARY REFLEX IMPAIRED [None]
  - RIB FRACTURE [None]
  - SOFT TISSUE INJURY [None]
  - SPINAL FRACTURE [None]
  - WAIST CIRCUMFERENCE INCREASED [None]
